FAERS Safety Report 11382872 (Version 1)
Quarter: 2015Q3

REPORT INFORMATION
  Report Type: Spontaneous
  Country: FR (occurrence: FR)
  Receive Date: 20150814
  Receipt Date: 20150814
  Transmission Date: 20151125
  Serious: Yes (Hospitalization)
  Sender: FDA-Public Use
  Company Number: FR-ABBVIE-15P-056-1444914-00

PATIENT
  Age: 45 Year
  Sex: Male

DRUGS (4)
  1. LOXAPAC [Concomitant]
     Active Substance: LOXAPINE SUCCINATE
     Indication: PRODUCT USED FOR UNKNOWN INDICATION
     Route: 065
  2. DEPAKOTE [Suspect]
     Active Substance: DIVALPROEX SODIUM
     Indication: PRODUCT USED FOR UNKNOWN INDICATION
     Route: 048
  3. XEPLION [Concomitant]
     Active Substance: PALIPERIDONE PALMITATE
     Indication: PRODUCT USED FOR UNKNOWN INDICATION
     Route: 065
  4. DEPAKOTE [Suspect]
     Active Substance: DIVALPROEX SODIUM
     Route: 048

REACTIONS (7)
  - Aggression [Recovered/Resolved]
  - Hallucination [Recovered/Resolved]
  - Agitation [Recovered/Resolved]
  - Abnormal behaviour [Recovered/Resolved]
  - Delirium [Recovered/Resolved]
  - Feeding disorder [Recovered/Resolved]
  - Nervousness [Recovered/Resolved]
